FAERS Safety Report 24361616 (Version 1)
Quarter: 2024Q3

REPORT INFORMATION
  Report Type: Spontaneous
  Country: US (occurrence: US)
  Receive Date: 20240925
  Receipt Date: 20240925
  Transmission Date: 20241017
  Serious: No
  Sender: Haleon PLC
  Company Number: US-HALEON-2198647

PATIENT
  Age: 37 Year
  Sex: Female

DRUGS (1)
  1. FLUTICASONE [Suspect]
     Active Substance: FLUTICASONE
     Indication: Pulmonary congestion
     Route: 055

REACTIONS (1)
  - Drug ineffective [Unknown]
